FAERS Safety Report 6554032-8 (Version None)
Quarter: 2010Q1

REPORT INFORMATION
  Report Type: 
  Country: None (occurrence: None)
  Receive Date: 20100122
  Receipt Date: 20100105
  Transmission Date: 20100710
  Serious: Yes (Death, Hospitalization)
  Sender: FDA-Public Use
  Company Number: 2010AC000016

PATIENT
  Sex: Female

DRUGS (1)
  1. DIGOXIN [Suspect]
     Dosage: 125 MCG;QD;PO
     Route: 048
     Dates: start: 20080201, end: 20080401

REACTIONS (14)
  - ASTHENIA [None]
  - ATRIOVENTRICULAR BLOCK FIRST DEGREE [None]
  - BRADYCARDIA [None]
  - DECREASED APPETITE [None]
  - ECONOMIC PROBLEM [None]
  - FATIGUE [None]
  - HYPERKALAEMIA [None]
  - HYPOTENSION [None]
  - MULTIPLE INJURIES [None]
  - NAUSEA [None]
  - RENAL FAILURE [None]
  - THERAPEUTIC AGENT TOXICITY [None]
  - VISION BLURRED [None]
  - VOMITING [None]
